FAERS Safety Report 14230175 (Version 2)
Quarter: 2017Q4

REPORT INFORMATION
  Report Type: Spontaneous
  Country: NZ (occurrence: NZ)
  Receive Date: 20171128
  Receipt Date: 20171223
  Transmission Date: 20180321
  Serious: Yes (Life-Threatening, Hospitalization)
  Sender: FDA-Public Use
  Company Number: NZ-BAXTER-2017BAX039065

PATIENT
  Age: 74 Year
  Sex: Male

DRUGS (12)
  1. SODIUM CHLORIDE, 0.9%, SOLUTION FOR INFUSION [Suspect]
     Active Substance: SODIUM CHLORIDE
     Indication: MEDICATION DILUTION
     Dosage: COMPOUNDED WITH PACLITAXEL, WEEKLY
     Route: 042
     Dates: start: 20171031, end: 20171107
  2. CITALOPRAM [Concomitant]
     Active Substance: CITALOPRAM HYDROBROMIDE
     Indication: DEPRESSION
     Dosage: LONGSTANDING
     Route: 048
  3. HYDROCORTISONE. [Suspect]
     Active Substance: HYDROCORTISONE
     Indication: HYPOTENSION
  4. SALBUTAMOL [Suspect]
     Active Substance: ALBUTEROL
     Indication: ADVERSE EVENT
     Dosage: NEBULIZER
     Route: 055
     Dates: start: 201711
  5. LEVOTHYROXINE. [Concomitant]
     Active Substance: LEVOTHYROXINE
     Indication: HYPOTHYROIDISM
     Dosage: LONGSTANDING
     Route: 048
  6. OMEPRAZOLE. [Concomitant]
     Active Substance: OMEPRAZOLE
     Indication: REFLUX LARYNGITIS
     Dosage: LONGSTANDING
     Route: 048
  7. CHLORPHENIRAMINE. [Suspect]
     Active Substance: CHLORPHENIRAMINE
     Indication: CHEST PAIN
     Route: 042
     Dates: start: 201711
  8. HYDROCORTISONE. [Suspect]
     Active Substance: HYDROCORTISONE
     Indication: CHEST PAIN
     Route: 042
     Dates: start: 201711
  9. MORPHINE [Suspect]
     Active Substance: MORPHINE
     Indication: CHEST PAIN
     Route: 042
     Dates: start: 201711
  10. CARBOPLATIN. [Suspect]
     Active Substance: CARBOPLATIN
     Indication: LUNG SQUAMOUS CELL CARCINOMA STAGE III
     Route: 065
  11. PACLITAXEL. [Suspect]
     Active Substance: PACLITAXEL
     Indication: LUNG SQUAMOUS CELL CARCINOMA STAGE III
     Dosage: COMPOUNDED WITH SODIUM CHLORIDE, WEEKLY
     Route: 042
     Dates: start: 20171031, end: 20171107
  12. CHLORPHENIRAMINE. [Suspect]
     Active Substance: CHLORPHENIRAMINE
     Indication: HYPOTENSION

REACTIONS (5)
  - Wheezing [Recovered/Resolved]
  - Pyrexia [Unknown]
  - Chest pain [Recovered/Resolved]
  - Hypotension [Recovered/Resolved]
  - Chills [Recovered/Resolved]

NARRATIVE: CASE EVENT DATE: 201711
